FAERS Safety Report 25062017 (Version 1)
Quarter: 2025Q1

REPORT INFORMATION
  Report Type: Spontaneous
  Country: US (occurrence: US)
  Receive Date: 20250311
  Receipt Date: 20250311
  Transmission Date: 20250409
  Serious: No
  Sender: OTSUKA
  Company Number: US-OTSUKA-2024_019765

PATIENT
  Sex: Male

DRUGS (1)
  1. INQOVI [Suspect]
     Active Substance: CEDAZURIDINE\DECITABINE
     Indication: Product used for unknown indication
     Dosage: 1 DF (35 MG OF DECITABINE AND 100 MG OF CEDAZURIDINE) QD FOR 5 DAYS OF A 28 DAYS CYCLE
     Route: 048

REACTIONS (1)
  - Laboratory test abnormal [Unknown]
